FAERS Safety Report 5651933-X (Version None)
Quarter: 2008Q1

REPORT INFORMATION
  Report Type: 
  Country: None (occurrence: None)
  Receive Date: 20080131
  Receipt Date: 20071107
  Transmission Date: 20080703
  Serious: No
  Sender: FDA-Public Use
  Company Number: US200711001977

PATIENT
  Age: 65 Year
  Sex: Female
  Weight: 117.9 kg

DRUGS (8)
  1. BYETTA [Suspect]
     Indication: TYPE 2 DIABETES MELLITUS
     Dosage: 10 UG, 2/D, SUBCUTANEOUS
     Route: 058
     Dates: start: 20060101
  2. GLYBURIDE [Concomitant]
  3. TOPROL-XL [Concomitant]
  4. DIOVAN HCT [Concomitant]
  5. NEXIUM [Concomitant]
  6. SINGULAIR [Concomitant]
  7. ESTROGENIC SUBSTANCE [Concomitant]
  8. CYMBALTA [Concomitant]

REACTIONS (13)
  - BLOOD GLUCOSE DECREASED [None]
  - BLOOD GLUCOSE INCREASED [None]
  - BLOOD PRESSURE INCREASED [None]
  - DIZZINESS [None]
  - GLYCOSYLATED HAEMOGLOBIN INCREASED [None]
  - HEPATIC CYST [None]
  - HYPERHIDROSIS [None]
  - INSOMNIA [None]
  - POLYPECTOMY [None]
  - RESTLESS LEGS SYNDROME [None]
  - SLEEP APNOEA SYNDROME [None]
  - STRESS [None]
  - TREMOR [None]
